FAERS Safety Report 9440254 (Version 1)
Quarter: 2013Q3

REPORT INFORMATION
  Report Type: Spontaneous
  Country: AU (occurrence: AU)
  Receive Date: 20130805
  Receipt Date: 20130805
  Transmission Date: 20140515
  Serious: Yes (Other)
  Sender: FDA-Public Use
  Company Number: PHHY2013AU082744

PATIENT
  Sex: Female

DRUGS (2)
  1. FEMARA [Suspect]
     Indication: BREAST CANCER
  2. CAPECITABINE [Suspect]

REACTIONS (3)
  - Breast cancer metastatic [Unknown]
  - Malignant neoplasm progression [Unknown]
  - Toxicity to various agents [Unknown]
